FAERS Safety Report 6305169-X (Version None)
Quarter: 2009Q3

REPORT INFORMATION
  Report Type: 
  Country: None (occurrence: None)
  Receive Date: 20090805
  Receipt Date: 20081031
  Transmission Date: 20100115
  Serious: Yes (Other)
  Sender: FDA-Public Use
  Company Number: DSU-2008-01843

PATIENT
  Sex: Male

DRUGS (1)
  1. BENICAR HCT [Suspect]
     Indication: DRUG USE FOR UNKNOWN INDICATION
     Dosage: 20/12.5 MG (QD), PER ORAL
     Route: 048

REACTIONS (1)
  - RENAL FAILURE ACUTE [None]
